FAERS Safety Report 10505448 (Version 1)
Quarter: 2014Q4

REPORT INFORMATION
  Report Type: Spontaneous
  Country: US (occurrence: US)
  Receive Date: 20141008
  Receipt Date: 20141008
  Transmission Date: 20150528
  Serious: No
  Sender: FDA-Public Use
  Company Number: US-ELI_LILLY_AND_COMPANY-US201409010337

PATIENT
  Sex: Male

DRUGS (6)
  1. HUMALOG MIX50/50 [Suspect]
     Active Substance: INSULIN LISPRO
     Dosage: UNK
  2. HUMALOG MIX50/50 [Suspect]
     Active Substance: INSULIN LISPRO
  3. ASPIRIN. [Concomitant]
     Active Substance: ASPIRIN
     Route: 065
  4. HUMALOG [Suspect]
     Active Substance: INSULIN LISPRO
     Indication: DIABETES MELLITUS
  5. WARFARIN [Concomitant]
     Active Substance: WARFARIN
     Route: 065
  6. FUROSEMIDE. [Concomitant]
     Active Substance: FUROSEMIDE
     Route: 065

REACTIONS (2)
  - Blood glucose increased [Unknown]
  - Underdose [Unknown]
